FAERS Safety Report 11773319 (Version 1)
Quarter: 2015Q4

REPORT INFORMATION
  Report Type: Report from Study
  Country: US (occurrence: US)
  Receive Date: 20151124
  Receipt Date: 20151124
  Transmission Date: 20160304
  Serious: Yes (Hospitalization)
  Sender: FDA-Public Use
  Company Number: US-ABBVIE-15P-163-1506906-00

PATIENT
  Age: 66 Year
  Sex: Male
  Weight: 84.9 kg

DRUGS (2)
  1. DUOPA [Suspect]
     Active Substance: CARBIDOPA\LEVODOPA
     Dosage: FOR FOUR HOURS
     Route: 065
     Dates: start: 20151120
  2. DUOPA [Suspect]
     Active Substance: CARBIDOPA\LEVODOPA
     Indication: PARKINSON^S DISEASE
     Route: 065
     Dates: end: 20151119

REACTIONS (6)
  - Urine output decreased [Unknown]
  - Bronchitis [Unknown]
  - Tremor [Unknown]
  - Freezing phenomenon [Unknown]
  - Musculoskeletal stiffness [Unknown]
  - Stupor [Unknown]

NARRATIVE: CASE EVENT DATE: 20151118
